FAERS Safety Report 12953183 (Version 3)
Quarter: 2017Q1

REPORT INFORMATION
  Report Type: Report from Study
  Country: FR (occurrence: FR)
  Receive Date: 20161117
  Receipt Date: 20170117
  Transmission Date: 20170428
  Serious: Yes (Hospitalization)
  Sender: FDA-Public Use
  Company Number: FR-CELGENEUS-FRA-2016112482

PATIENT
  Age: 63 Year
  Sex: Male
  Weight: 80 kg

DRUGS (4)
  1. ABRAXANE [Suspect]
     Active Substance: PACLITAXEL
     Indication: PANCREATIC CARCINOMA METASTATIC
     Dosage: 245MG
     Route: 041
     Dates: start: 20161006, end: 20161020
  2. GEMCITABINE [Suspect]
     Active Substance: GEMCITABINE\GEMCITABINE HYDROCHLORIDE
     Dosage: REDUCED
     Route: 041
     Dates: end: 20161115
  3. ABRAXANE [Suspect]
     Active Substance: PACLITAXEL
     Dosage: DOSE REDUCED
     Route: 041
     Dates: end: 20161115
  4. GEMCITABINE [Suspect]
     Active Substance: GEMCITABINE\GEMCITABINE HYDROCHLORIDE
     Indication: PANCREATIC CARCINOMA METASTATIC
     Route: 041
     Dates: start: 20161006, end: 20161020

REACTIONS (2)
  - Sepsis [Not Recovered/Not Resolved]
  - Dermatitis bullous [Recovering/Resolving]

NARRATIVE: CASE EVENT DATE: 20161103
